FAERS Safety Report 14559079 (Version 1)
Quarter: 2018Q1

REPORT INFORMATION
  Report Type: Spontaneous
  Country: US (occurrence: US)
  Receive Date: 20180221
  Receipt Date: 20180221
  Transmission Date: 20180509
  Serious: No
  Sender: FDA-Public Use
  Company Number: US-SAGENT PHARMACEUTICALS-2017SAG000052

PATIENT

DRUGS (4)
  1. PROPOFOL. [Suspect]
     Active Substance: PROPOFOL
     Dosage: 200 MG/20ML (TWICE AS MUCH)
  2. PROPOFOL. [Suspect]
     Active Substance: PROPOFOL
     Indication: PRODUCT USED FOR UNKNOWN INDICATION
     Dosage: 200MG/20 ML, UNK (^TWICE AS MUCH^)
  3. PROPOFOL. [Suspect]
     Active Substance: PROPOFOL
     Dosage: 500MG/50 ML, (^TWICE AS MUCH^)
  4. PROPOFOL. [Suspect]
     Active Substance: PROPOFOL
     Dosage: 20 ML, UNK (^TWICE AS MUCH^)

REACTIONS (1)
  - Drug ineffective [Unknown]
